FAERS Safety Report 6414642-5 (Version None)
Quarter: 2009Q4

REPORT INFORMATION
  Report Type: 
  Country: None (occurrence: None)
  Receive Date: 20091026
  Receipt Date: 20091015
  Transmission Date: 20100525
  Serious: Yes (Hospitalization, Other)
  Sender: FDA-Public Use
  Company Number: US-BIOGENIDEC-2008BI010055

PATIENT
  Age: 62 Year
  Sex: Female

DRUGS (2)
  1. AVONEX [Suspect]
     Indication: MULTIPLE SCLEROSIS
     Route: 030
     Dates: start: 20020926, end: 20040420
  2. AVONEX [Suspect]
     Route: 030
     Dates: start: 20070817, end: 20090601

REACTIONS (2)
  - LYMPHOMA [None]
  - RENAL CELL CARCINOMA [None]
